FAERS Safety Report 13365549 (Version 1)
Quarter: 2017Q1

REPORT INFORMATION
  Report Type: Spontaneous
  Country: US (occurrence: US)
  Receive Date: 20170323
  Receipt Date: 20170323
  Transmission Date: 20170429
  Serious: No
  Sender: FDA-Public Use
  Company Number: US-ALLERGAN-2016-001026

PATIENT
  Age: 79 Year
  Sex: Female

DRUGS (6)
  1. ESTRACE [Suspect]
     Active Substance: ESTRADIOL
     Indication: SKIN ATROPHY
     Dosage: 3 TIMES A WEEK
     Route: 067
     Dates: start: 201605
  2. THYROID [Concomitant]
     Active Substance: LEVOTHYROXINE\LIOTHYRONINE
     Indication: THYROID DISORDER
     Route: 048
  3. PRILOSEC [Concomitant]
     Active Substance: OMEPRAZOLE MAGNESIUM
     Route: 048
  4. VITAMINS WITH MINERALS [Concomitant]
     Active Substance: MINERALS\VITAMINS
     Indication: SUPPLEMENTATION THERAPY
     Route: 048
  5. ANTIHISTAMINES [Concomitant]
     Active Substance: ANTIHISTAMINES NOS
     Route: 048
  6. ESTRACE [Suspect]
     Active Substance: ESTRADIOL
     Indication: SKIN IRRITATION

REACTIONS (2)
  - Vulvovaginal discomfort [Recovering/Resolving]
  - Vulvovaginal erythema [Recovering/Resolving]

NARRATIVE: CASE EVENT DATE: 201605
